FAERS Safety Report 12736488 (Version 1)
Quarter: 2016Q3

REPORT INFORMATION
  Report Type: Spontaneous
  Country: US (occurrence: US)
  Receive Date: 20160912
  Receipt Date: 20160912
  Transmission Date: 20161109
  Serious: Yes (Hospitalization, Other)
  Sender: FDA-Public Use
  Company Number: None

PATIENT
  Sex: Male

DRUGS (1)
  1. ENTRESTO [Suspect]
     Active Substance: SACUBITRIL\VALSARTAN
     Indication: PRODUCT USED FOR UNKNOWN INDICATION
     Dosage: ENTRESTO49/51MG 1BID ORALLY
     Route: 048
     Dates: start: 201608

REACTIONS (4)
  - Heart rate increased [None]
  - Dizziness [None]
  - Cough [None]
  - Diarrhoea [None]
